FAERS Safety Report 6697243-3 (Version None)
Quarter: 2010Q2

REPORT INFORMATION
  Report Type: 
  Country: None (occurrence: None)
  Receive Date: 20100426
  Receipt Date: 20100414
  Transmission Date: 20101027
  Serious: Yes (Death)
  Sender: FDA-Public Use
  Company Number: PH-PFIZER INC-2010043674

PATIENT
  Sex: Male

DRUGS (4)
  1. DILANTIN [Suspect]
     Indication: PARTIAL SEIZURES
     Dosage: UNK
     Route: 042
  2. PHENOBARBITAL [Concomitant]
     Indication: PARTIAL SEIZURES
     Dosage: 1300 MG, UNK
  3. MIDAZOLAM HCL [Concomitant]
     Indication: PARTIAL SEIZURES
     Dosage: UNK
  4. KEPPRA [Concomitant]
     Indication: PARTIAL SEIZURES
     Dosage: UNK

REACTIONS (2)
  - CARDIAC FIBRILLATION [None]
  - VENTRICULAR TACHYCARDIA [None]
